FAERS Safety Report 22115938 (Version 1)
Quarter: 2023Q1

REPORT INFORMATION
  Report Type: Spontaneous
  Country: US (occurrence: None)
  Receive Date: 20230320
  Receipt Date: 20230320
  Transmission Date: 20230418
  Serious: Yes (Other)
  Sender: FDA-Public Use
  Company Number: US-ROCHE-3312232

PATIENT
  Sex: Male

DRUGS (1)
  1. HEMLIBRA [Suspect]
     Active Substance: EMICIZUMAB-KXWH
     Indication: Factor VIII deficiency
     Dosage: MAINTENANCE DOSE: INJECT HEMLIBRA 180MG(1.2ML), SUBCUTANEOUSLY EVERY 2WEEKS INTO ABDOMEN, THIGHS OR
     Route: 058

REACTIONS (2)
  - Haemarthrosis [Unknown]
  - Arthralgia [Unknown]
